FAERS Safety Report 4579814-3 (Version None)
Quarter: 2005Q1

REPORT INFORMATION
  Report Type: 
  Country: None (occurrence: None)
  Receive Date: 20050209
  Receipt Date: 20050127
  Transmission Date: 20050727
  Serious: Yes (Other)
  Sender: FDA-Public Use
  Company Number: K200500153

PATIENT
  Age: 22 Year
  Sex: Female

DRUGS (1)
  1. APLISOL [Suspect]
     Dosage: SINGLE, INTRAMUSCULAR
     Route: 030
     Dates: start: 20030811, end: 20030811

REACTIONS (15)
  - ARTHRALGIA [None]
  - ASTHENIA [None]
  - BACK PAIN [None]
  - CHEST PAIN [None]
  - GRANULOMA [None]
  - HYPOKINESIA [None]
  - INJECTION SITE CYST [None]
  - INJECTION SITE REACTION [None]
  - INJECTION SITE SWELLING [None]
  - INJECTION SITE WARMTH [None]
  - LOCAL REACTION [None]
  - MEDICATION ERROR [None]
  - PAIN [None]
  - RASH MACULAR [None]
  - TENDERNESS [None]
